FAERS Safety Report 6536827-X (Version None)
Quarter: 2010Q1

REPORT INFORMATION
  Report Type: 
  Country: None (occurrence: None)
  Receive Date: 20100105
  Receipt Date: 20091221
  Transmission Date: 20100710
  Serious: Yes (Hospitalization)
  Sender: FDA-Public Use
  Company Number: RENA-1000613

PATIENT
  Age: 70 Year
  Sex: Male

DRUGS (14)
  1. RENAGEL [Suspect]
     Indication: HYPERPHOSPHATAEMIA
     Dosage: ORAL; 0.8 G, TID, ORAL
     Route: 048
     Dates: start: 20090106, end: 20090114
  2. RENAGEL [Suspect]
     Indication: HYPERPHOSPHATAEMIA
     Dosage: ORAL; 0.8 G, TID, ORAL
     Route: 048
     Dates: start: 20070101
  3. LEVOTHYROXINE SODIUM [Suspect]
     Indication: THYROIDECTOMY
     Dosage: 50 50 MCG PER DAY, ORAL
     Route: 048
     Dates: start: 20030101
  4. PHOSPHATE BINDER () UNKNOWN [Suspect]
     Indication: HYPERKALAEMIA
     Dates: start: 20070101
  5. PHOSPHATE BINDER () UNKNOWN [Suspect]
     Indication: HYPERPHOSPHATAEMIA
     Dates: start: 20070101
  6. FOSRENOL [Suspect]
     Indication: DRUG USE FOR UNKNOWN INDICATION
     Dosage: 750 MG, TID, ORAL
     Route: 048
     Dates: start: 20090115, end: 20090826
  7. OYSTER SHELL CALCIUM (CALCIUM CARBONATE) UNKNOWN [Suspect]
     Indication: DRUG USE FOR UNKNOWN INDICATION
     Dosage: 1500 MG + 1000 MG + 1500 MG
     Dates: start: 20080825, end: 20090105
  8. VITAMIN B COMPLEX (VITAMIN-B-KOMPLEX STANDARD) [Concomitant]
  9. MICARDIS [Concomitant]
  10. METOPROLOL SUCCINATE [Concomitant]
  11. VENOFER [Concomitant]
  12. FOLINSYRE (FOLIC ACID) [Concomitant]
  13. INNOHEP [Concomitant]
  14. OSVAREN (CALCIUM ACETATE AND MAGNESIUM CARBONATE) [Concomitant]

REACTIONS (4)
  - BLOOD THYROID STIMULATING HORMONE INCREASED [None]
  - DRUG INTERACTION [None]
  - THYROXINE DECREASED [None]
  - TRI-IODOTHYRONINE DECREASED [None]
